FAERS Safety Report 18396730 (Version 3)
Quarter: 2020Q4

REPORT INFORMATION
  Report Type: Report from Study
  Country: US (occurrence: US)
  Receive Date: 20201019
  Receipt Date: 20201029
  Transmission Date: 20210114
  Serious: Yes (Hospitalization)
  Sender: FDA-Public Use
  Company Number: US-ROCHE-2674113

PATIENT
  Age: 75 Year
  Sex: Male
  Weight: 73 kg

DRUGS (54)
  1. GILTERITINIB [Suspect]
     Active Substance: GILTERITINIB
     Indication: ACUTE MYELOID LEUKAEMIA
     Route: 048
     Dates: start: 20200818, end: 20201013
  2. CRESEMBA [Concomitant]
     Active Substance: ISAVUCONAZONIUM SULFATE
  3. SODIUM CHLORIDE 0.9% [Concomitant]
     Active Substance: SODIUM CHLORIDE
  4. TRUSOPT [Concomitant]
     Active Substance: DORZOLAMIDE HYDROCHLORIDE
     Dosage: EYE DROPS, 2 %
  5. ISAVUCONAZOLE [Concomitant]
     Active Substance: ISAVUCONAZOLE
     Dosage: 186
  6. CRESTOR [Concomitant]
     Active Substance: ROSUVASTATIN CALCIUM
  7. ZOVIRAX [Concomitant]
     Active Substance: ACYCLOVIR
  8. NORVASC [Concomitant]
     Active Substance: AMLODIPINE BESYLATE
  9. SODIUM BICARBONATE. [Concomitant]
     Active Substance: SODIUM BICARBONATE
  10. COLACE [Concomitant]
     Active Substance: DOCUSATE SODIUM
  11. MAGNESIUM OXIDE. [Concomitant]
     Active Substance: MAGNESIUM OXIDE
  12. ZOLPIDEM [Concomitant]
     Active Substance: ZOLPIDEM TARTRATE
  13. TRAVATAN [Concomitant]
     Active Substance: TRAVOPROST
     Dosage: EYE DROPS, 0.004 %
  14. LOMOTIL [Concomitant]
     Active Substance: ATROPINE SULFATE\DIPHENOXYLATE HYDROCHLORIDE
     Dosage: 2.5-0.025 MG TABLET AT 1 TABLET,
  15. ZYPREXA ZYDIS [Concomitant]
     Active Substance: OLANZAPINE
     Dosage: SOLUTABLET
  16. PROTONIX [Concomitant]
     Active Substance: PANTOPRAZOLE SODIUM
  17. AUGMENTIN [Concomitant]
     Active Substance: AMOXICILLIN\CLAVULANATE POTASSIUM
  18. ROSUVASTATIN. [Concomitant]
     Active Substance: ROSUVASTATIN
  19. IVOSIDENIB [Concomitant]
     Active Substance: IVOSIDENIB
     Dates: start: 20190103
  20. ALUMINIUM-MAGNESIUM [Concomitant]
  21. ATEZOLIZUMAB. [Suspect]
     Active Substance: ATEZOLIZUMAB
     Indication: ACUTE MYELOID LEUKAEMIA
     Dosage: LAST DOSE OF ATEZOLIZUMAB WAS ON 29/SEP/2020.
     Route: 042
     Dates: start: 20200818, end: 20200929
  22. MAALOX ANTACID [Concomitant]
     Active Substance: ALUMINUM HYDROXIDE\DIMETHICONE\MAGNESIUM HYDROXIDE
  23. DIPHENHYDRAMINE. [Concomitant]
     Active Substance: DIPHENHYDRAMINE
     Dosage: MOUTHWASH
  24. MAGNESIUM SULFATE. [Concomitant]
     Active Substance: MAGNESIUM SULFATE
     Route: 042
  25. TYLENOL [Concomitant]
     Active Substance: ACETAMINOPHEN
  26. TIMOLOL MALEATE. [Concomitant]
     Active Substance: TIMOLOL MALEATE
  27. HEPARIN [Concomitant]
     Active Substance: HEPARIN SODIUM
  28. VENETOCLAX. [Concomitant]
     Active Substance: VENETOCLAX
     Dates: start: 20191026, end: 20200810
  29. ONDANSETRON [Concomitant]
     Active Substance: ONDANSETRON
  30. DELTASONE [Concomitant]
     Active Substance: PREDNISONE
  31. ZOFRAN [Concomitant]
     Active Substance: ONDANSETRON HYDROCHLORIDE
  32. BRIMONIDINE [Concomitant]
     Active Substance: BRIMONIDINE TARTRATE
  33. IMODIUM [Concomitant]
     Active Substance: LOPERAMIDE HYDROCHLORIDE
  34. DOCUSATE SODIUM. [Concomitant]
     Active Substance: DOCUSATE SODIUM
  35. ZYLOPRIM [Concomitant]
     Active Substance: ALLOPURINOL
  36. COLACE [Concomitant]
     Active Substance: DOCUSATE SODIUM
  37. MAG-OX [Concomitant]
     Active Substance: MAGNESIUM OXIDE
  38. COSOPT [Concomitant]
     Active Substance: DORZOLAMIDE HYDROCHLORIDE\TIMOLOL MALEATE
  39. FLAGYL [Concomitant]
     Active Substance: METRONIDAZOLE\METRONIDAZOLE HYDROCHLORIDE
  40. DIPHENOXYLATE/ATROPINE [Concomitant]
     Active Substance: ATROPINE\DIPHENOXYLATE
  41. MAGNESIUM SULFATE. [Concomitant]
     Active Substance: MAGNESIUM SULFATE
  42. POTASSIUM CHLORIDE. [Concomitant]
     Active Substance: POTASSIUM CHLORIDE
     Dosage: CENTRAL LINE ONLY (POTASSIUM CHLORIDE) INFUSION 40MEQ/100ML.
  43. ALPHAGAN P [Concomitant]
     Active Substance: BRIMONIDINE TARTRATE
     Dosage: EYE DROPS, 0.2 %
  44. CEFTIN [Concomitant]
     Active Substance: CEFUROXIME AXETIL
  45. LOMOTIL [Concomitant]
     Active Substance: ATROPINE SULFATE\DIPHENOXYLATE HYDROCHLORIDE
  46. NOXAFIL [Concomitant]
     Active Substance: POSACONAZOLE
  47. ULTRAM [Concomitant]
     Active Substance: TRAMADOL HYDROCHLORIDE
  48. XALATAN [Concomitant]
     Active Substance: LATANOPROST
  49. ACYCLOVIR [ACICLOVIR] [Concomitant]
     Active Substance: ACYCLOVIR
  50. DORZOLAMID/TIMOLOL [Concomitant]
     Active Substance: DORZOLAMIDE HYDROCHLORIDE\TIMOLOL MALEATE
  51. LIDOCAINE. [Concomitant]
     Active Substance: LIDOCAINE
     Dosage: MOUTHWASH
  52. MAALOX [ALUMINIUM HYDROXIDE;MAGNESIUM HYDROXIDE;SIMETICONE] [Concomitant]
  53. PRILOSEC [Concomitant]
     Active Substance: OMEPRAZOLE MAGNESIUM
  54. HEPARIN LOCK FLUSH [Concomitant]
     Active Substance: HEPARIN SODIUM
     Dosage: 300 UNITS

REACTIONS (4)
  - Acute kidney injury [Not Recovered/Not Resolved]
  - Febrile neutropenia [Recovered/Resolved]
  - Enterocolitis infectious [Not Recovered/Not Resolved]
  - Febrile neutropenia [Recovering/Resolving]

NARRATIVE: CASE EVENT DATE: 20201007
